FAERS Safety Report 9712297 (Version 1)
Quarter: 2013Q4

REPORT INFORMATION
  Report Type: Spontaneous
  Country: US (occurrence: None)
  Receive Date: 20131125
  Receipt Date: 20131125
  Transmission Date: 20140711
  Serious: Yes (Disabling)
  Sender: FDA-Public Use
  Company Number: None

PATIENT
  Age: 79 Year
  Sex: Female
  Weight: 58.97 kg

DRUGS (7)
  1. NORVASC [Suspect]
     Indication: HYPERTENSION
     Dosage: 1 PILL
     Route: 048
     Dates: start: 2009, end: 20130804
  2. CHOLODINE [Concomitant]
  3. PRILOSEC [Concomitant]
  4. TYLENOL [Concomitant]
  5. BENADRYL [Concomitant]
  6. MULTI VITAMIN [Concomitant]
  7. CALTRATE WITH VITAMIN D [Concomitant]

REACTIONS (13)
  - Gait disturbance [None]
  - Arthralgia [None]
  - Arthralgia [None]
  - Osteoarthritis [None]
  - Oedema peripheral [None]
  - Oedema peripheral [None]
  - Dyspnoea [None]
  - Asthenia [None]
  - Inflammation [None]
  - Urinary incontinence [None]
  - Cough [None]
  - Ear pain [None]
  - Ear deformity acquired [None]
